FAERS Safety Report 14366472 (Version 2)
Quarter: 2018Q1

REPORT INFORMATION
  Report Type: Spontaneous
  Country: DE (occurrence: DE)
  Receive Date: 20180109
  Receipt Date: 20180129
  Transmission Date: 20180509
  Serious: Yes (Hospitalization)
  Sender: FDA-Public Use
  Company Number: PHHY2018DE001076

PATIENT
  Age: 95 Year
  Sex: Female

DRUGS (6)
  1. ATACAND [Concomitant]
     Active Substance: CANDESARTAN CILEXETIL
     Indication: PRODUCT USED FOR UNKNOWN INDICATION
     Dosage: UNK
     Route: 065
  2. ASPIRIN. [Concomitant]
     Active Substance: ASPIRIN
     Indication: PRODUCT USED FOR UNKNOWN INDICATION
     Dosage: UNK
     Route: 065
  3. AZOPT [Suspect]
     Active Substance: BRINZOLAMIDE
     Dosage: UNK UNK, QD
     Route: 047
     Dates: start: 20171224, end: 20171227
  4. SIMVABETA [Concomitant]
     Active Substance: SIMVASTATIN
     Indication: PRODUCT USED FOR UNKNOWN INDICATION
     Dosage: UNK
     Route: 065
  5. XALATAN [Concomitant]
     Active Substance: LATANOPROST
     Indication: PRODUCT USED FOR UNKNOWN INDICATION
     Dosage: UNK UNK, QD
     Route: 047
  6. AZOPT [Suspect]
     Active Substance: BRINZOLAMIDE
     Indication: PRODUCT USED FOR UNKNOWN INDICATION
     Dosage: UNK UNK, QD
     Route: 047
     Dates: start: 20171213, end: 20171219

REACTIONS (10)
  - Confusional state [Unknown]
  - Dysphonia [Unknown]
  - Pneumonia mycoplasmal [Unknown]
  - Dyspnoea [Unknown]
  - Fatigue [Unknown]
  - Blood pressure increased [Unknown]
  - Pneumonia bacterial [Unknown]
  - Cough [Unknown]
  - C-reactive protein increased [Unknown]
  - Malaise [Unknown]

NARRATIVE: CASE EVENT DATE: 201712
